FAERS Safety Report 6503501-5 (Version None)
Quarter: 2009Q4

REPORT INFORMATION
  Report Type: 
  Country: None (occurrence: None)
  Receive Date: 20091217
  Receipt Date: 20091207
  Transmission Date: 20100525
  Serious: Yes (Other)
  Sender: FDA-Public Use
  Company Number: BR-PFIZER INC-2009306521

PATIENT
  Age: 9 Year
  Sex: Female

DRUGS (1)
  1. FARLUTAL [Suspect]
     Indication: MENSTRUAL CYCLE MANAGEMENT
     Dosage: 5 MG, UNK
     Route: 048

REACTIONS (1)
  - SKIN STRIAE [None]
